FAERS Safety Report 22639311 (Version 1)
Quarter: 2023Q2

REPORT INFORMATION
  Report Type: Other
  Country: FR (occurrence: FR)
  Receive Date: 20230626
  Receipt Date: 20230626
  Transmission Date: 20230722
  Serious: Yes (Hospitalization)
  Sender: FDA-Public Use
  Company Number: None

PATIENT

DRUGS (4)
  1. SERTRALINE [Suspect]
     Active Substance: SERTRALINE HYDROCHLORIDE
     Indication: Suspected suicide attempt
     Dosage: UNK
     Route: 048
     Dates: start: 202305, end: 202305
  2. VENLAFAXINE [Suspect]
     Active Substance: VENLAFAXINE HYDROCHLORIDE
     Indication: Suicide attempt
     Dosage: UNK
     Route: 048
     Dates: start: 202305, end: 202305
  3. OXAZEPAM [Suspect]
     Active Substance: OXAZEPAM
     Indication: Suspected suicide attempt
     Dosage: UNK
     Route: 048
     Dates: start: 202305, end: 202305
  4. NAPROXEN [Concomitant]
     Active Substance: NAPROXEN
     Indication: Suspected suicide attempt
     Dosage: UNK
     Route: 048
     Dates: start: 202305, end: 202305

REACTIONS (1)
  - Hypoglycaemic coma [Not Recovered/Not Resolved]

NARRATIVE: CASE EVENT DATE: 20230526
